FAERS Safety Report 9581057 (Version 1)
Quarter: 2013Q4

REPORT INFORMATION
  Report Type: Spontaneous
  Country: US (occurrence: None)
  Receive Date: 20131001
  Receipt Date: 20131001
  Transmission Date: 20140711
  Serious: Yes (Hospitalization)
  Sender: FDA-Public Use
  Company Number: None

PATIENT
  Age: 79 Year
  Sex: Female
  Weight: 56.7 kg

DRUGS (20)
  1. MUCINEX [Suspect]
     Dosage: COUGH 100 MG Z PAC TAKE 2 FIRST DAY 500MG
     Route: 048
  2. BENZONATATE [Suspect]
     Route: 048
  3. Z-PAK [Suspect]
     Dosage: TAKE 2 FIRST DAY
     Route: 048
  4. PLAVIX [Concomitant]
  5. LISINOPRIL [Concomitant]
  6. ATENOLOL [Concomitant]
  7. PRAVASTATIN [Concomitant]
  8. HYDROCHLOROTHIAZIDE [Concomitant]
  9. AMLODIPINE [Concomitant]
  10. 1-DAY VITAMINS [Concomitant]
  11. D-3 2000 [Concomitant]
  12. OSTEOBIFLEX [Concomitant]
  13. VIT C [Concomitant]
  14. NIACIN [Concomitant]
  15. FLAXSEED [Concomitant]
  16. CALCIUM [Concomitant]
  17. FISH OIL [Concomitant]
  18. I-CAP [Concomitant]
  19. COD LIVER OIL [Concomitant]
  20. ALENDRONATE [Concomitant]

REACTIONS (4)
  - Loss of consciousness [None]
  - Head injury [None]
  - Face injury [None]
  - Contusion [None]
